FAERS Safety Report 8622477-8 (Version None)
Quarter: 2012Q3

REPORT INFORMATION
  Report Type: 
  Country: None (occurrence: None)
  Receive Date: 20120827
  Receipt Date: 20120816
  Transmission Date: 20120928
  Serious: No
  Sender: FDA-Public Use
  Company Number: US-009507513-1208USA008647

PATIENT

DRUGS (1)
  1. NUVARING [Suspect]
     Indication: MENSTRUATION IRREGULAR
     Dosage: 3 WEEKS IN 1 WEEK OUT
     Route: 067
     Dates: start: 20120814, end: 20120816

REACTIONS (4)
  - DIZZINESS [None]
  - VOMITING [None]
  - PAIN IN EXTREMITY [None]
  - OFF LABEL USE [None]
